FAERS Safety Report 22281383 (Version 2)
Quarter: 2023Q2

REPORT INFORMATION
  Report Type: Spontaneous
  Country: US (occurrence: US)
  Receive Date: 20230504
  Receipt Date: 20230519
  Transmission Date: 20230721
  Serious: Yes (Hospitalization)
  Sender: FDA-Public Use
  Company Number: US-TEVA-2023-US-2882042

PATIENT
  Age: 62 Year
  Sex: Male

DRUGS (1)
  1. WARFARIN [Suspect]
     Active Substance: WARFARIN
     Indication: Atrial fibrillation
     Route: 065

REACTIONS (4)
  - Haemorrhage [Recovered/Resolved]
  - Hypotony maculopathy [Recovered/Resolved]
  - Hyphaema [Recovered/Resolved]
  - Uveitis-glaucoma-hyphaema syndrome [Recovered/Resolved]
